FAERS Safety Report 9754698 (Version 1)
Quarter: 2013Q4

REPORT INFORMATION
  Report Type: Spontaneous
  Country: US (occurrence: US)
  Receive Date: 20131213
  Receipt Date: 20131213
  Transmission Date: 20140711
  Serious: No
  Sender: FDA-Public Use
  Company Number: US-GLAXOSMITHKLINE-A1004347A

PATIENT
  Age: 58 Year
  Sex: Female

DRUGS (1)
  1. TARGET [Suspect]
     Indication: EX-TOBACCO USER
     Dates: start: 20121203, end: 20121205

REACTIONS (4)
  - Palpitations [Not Recovered/Not Resolved]
  - Heart rate irregular [Not Recovered/Not Resolved]
  - Nervousness [Not Recovered/Not Resolved]
  - Chest pain [Not Recovered/Not Resolved]
